FAERS Safety Report 20426565 (Version 1)
Quarter: 2022Q1

REPORT INFORMATION
  Report Type: Spontaneous
  Country: FR (occurrence: FR)
  Receive Date: 20220204
  Receipt Date: 20220204
  Transmission Date: 20220424
  Serious: No
  Sender: FDA-Public Use
  Company Number: FR-EXELIXIS-CABO-21044975

PATIENT

DRUGS (9)
  1. CABOMETYX [Suspect]
     Active Substance: CABOZANTINIB S-MALATE
     Indication: Neoplasm malignant
     Dosage: 60 MG
     Dates: start: 201810, end: 201904
  2. CABOMETYX [Suspect]
     Active Substance: CABOZANTINIB S-MALATE
     Dosage: 80 MG
     Dates: start: 201904, end: 201909
  3. CABOMETYX [Suspect]
     Active Substance: CABOZANTINIB S-MALATE
     Dosage: 100 MG
     Dates: start: 201909, end: 201912
  4. CABOMETYX [Suspect]
     Active Substance: CABOZANTINIB S-MALATE
     Dosage: 120 MG
     Dates: start: 201912
  5. OXYCODONE [Concomitant]
     Active Substance: OXYCODONE
     Dosage: 120X2
     Dates: start: 201810
  6. OXYCODONE [Concomitant]
     Active Substance: OXYCODONE
     Dosage: 100X2
     Dates: start: 202101
  7. OXYCODONE [Concomitant]
     Active Substance: OXYCODONE
     Dosage: 160X2
     Dates: start: 201904
  8. CORTICOSTEROID NOS [Concomitant]
     Active Substance: CORTICOSTEROID NOS
     Dosage: UNK
     Dates: start: 201810
  9. CORTICOSTEROID NOS [Concomitant]
     Active Substance: CORTICOSTEROID NOS
     Dosage: UNK
     Dates: start: 201909

REACTIONS (3)
  - Mucosal inflammation [Not Recovered/Not Resolved]
  - Malignant neoplasm progression [Unknown]
  - Prescribed overdose [Unknown]

NARRATIVE: CASE EVENT DATE: 20190401
